FAERS Safety Report 19380108 (Version 1)
Quarter: 2021Q2

REPORT INFORMATION
  Report Type: Spontaneous
  Country: US (occurrence: US)
  Receive Date: 20210607
  Receipt Date: 20210607
  Transmission Date: 20210717
  Serious: No
  Sender: FDA-Public Use
  Company Number: US-009507513-2105USA005148

PATIENT
  Sex: Female
  Weight: 100 kg

DRUGS (2)
  1. BRIDION [Suspect]
     Active Substance: SUGAMMADEX
     Indication: NEUROMUSCULAR BLOCKADE REVERSAL
     Dosage: 2 MILLILITER, ONCE
     Route: 042
  2. BRIDION [Suspect]
     Active Substance: SUGAMMADEX
     Dosage: 2 MILLILITER, ONCE
     Route: 042

REACTIONS (4)
  - Tidal volume decreased [Recovered/Resolved]
  - Muscle twitching [Recovered/Resolved]
  - Asthenia [Recovered/Resolved]
  - Therapeutic product effect incomplete [Unknown]
